FAERS Safety Report 8921677 (Version 1)
Quarter: 2012Q4

REPORT INFORMATION
  Report Type: 
  Country: DK (occurrence: NL)
  Receive Date: 20121121
  Receipt Date: 20121121
  Transmission Date: 20130627
  Serious: Yes (Other)
  Sender: FDA-Public Use
  Company Number: NL-FRI-1000040579

PATIENT
  Sex: Female

DRUGS (1)
  1. CITALOPRAM [Suspect]
     Indication: SOCIAL PHOBIA

REACTIONS (5)
  - Road traffic accident [Unknown]
  - Jaw fracture [Unknown]
  - Tooth injury [Unknown]
  - Contusion [Unknown]
  - Off label use [Unknown]
